FAERS Safety Report 7990506-0 (Version None)
Quarter: 2011Q4

REPORT INFORMATION
  Report Type: 
  Country: None (occurrence: None)
  Receive Date: 20111219
  Receipt Date: 20101213
  Transmission Date: 20120403
  Serious: No
  Sender: FDA-Public Use
  Company Number: US-ASTRAZENECA-2010SE27122

PATIENT
  Age: 67 Year
  Sex: Male
  Weight: 113.4 kg

DRUGS (7)
  1. LASIX [Concomitant]
  2. CO-Q10 [Concomitant]
  3. LISINOPRIL [Concomitant]
  4. TOPAMAX [Concomitant]
  5. CRESTOR [Suspect]
     Indication: HYPERCHOLESTEROLAEMIA
     Route: 048
     Dates: start: 20100101, end: 20100401
  6. METOPROLOL TARTRATE [Concomitant]
  7. CRESTOR [Suspect]
     Route: 048

REACTIONS (3)
  - ARTHRALGIA [None]
  - PAIN IN EXTREMITY [None]
  - WRONG TECHNIQUE IN DRUG USAGE PROCESS [None]
